FAERS Safety Report 21399830 (Version 1)
Quarter: 2022Q4

REPORT INFORMATION
  Report Type: Spontaneous
  Country: US (occurrence: US)
  Receive Date: 20221001
  Receipt Date: 20221001
  Transmission Date: 20230113
  Serious: No
  Sender: FDA-Public Use
  Company Number: US-TEVA-2022-US-2075599

PATIENT
  Age: 52 Year
  Sex: Female

DRUGS (1)
  1. CINQAIR [Suspect]
     Active Substance: RESLIZUMAB
     Indication: Asthma
     Dosage: STRENGTH: 100 MG/10 ML, DOSE: 273 MG, FREQUENCY: EVERY 4 WEEKS
     Route: 042
     Dates: start: 20220827, end: 20220827

REACTIONS (3)
  - Sinusitis [Unknown]
  - Dyspnoea [Unknown]
  - Asthma [Unknown]

NARRATIVE: CASE EVENT DATE: 20220101
